FAERS Safety Report 13745245 (Version 1)
Quarter: 2017Q3

REPORT INFORMATION
  Report Type: Spontaneous
  Country: AU (occurrence: AU)
  Receive Date: 20170712
  Receipt Date: 20170712
  Transmission Date: 20171127
  Serious: Yes (Other)
  Sender: FDA-Public Use
  Company Number: AU-ASTRAZENECA-2017SE71367

PATIENT
  Sex: Male

DRUGS (1)
  1. BYDUREON [Suspect]
     Active Substance: EXENATIDE
     Dosage: 2 UNK
     Route: 065
     Dates: start: 20161212

REACTIONS (3)
  - Tachycardia [Unknown]
  - Abdominal pain [Unknown]
  - Malaise [Unknown]
